FAERS Safety Report 20777372 (Version 1)
Quarter: 2022Q2

REPORT INFORMATION
  Report Type: Other
  Country: None (occurrence: TW)
  Receive Date: 20220503
  Receipt Date: 20220503
  Transmission Date: 20220721
  Serious: Yes (Hospitalization, Other)
  Sender: FDA-Public Use
  Company Number: TW-Ajanta Pharma USA Inc.-2128405

PATIENT
  Age: 43 Year
  Sex: Male

DRUGS (2)
  1. METFORMIN HYDROCHLORIDE [Suspect]
     Active Substance: METFORMIN HYDROCHLORIDE
     Indication: Diabetes mellitus
  2. VILDAGLIPTIN [Concomitant]
     Active Substance: VILDAGLIPTIN

REACTIONS (5)
  - Hallucination, auditory [Recovered/Resolved]
  - Agnosia [Recovered/Resolved]
  - Lactic acidosis [Recovered/Resolved]
  - Unmasking of previously unidentified disease [Recovering/Resolving]
  - Diarrhoea [Recovering/Resolving]
